FAERS Safety Report 17678739 (Version 8)
Quarter: 2020Q4

REPORT INFORMATION
  Report Type: Report from Study
  Country: US (occurrence: US)
  Receive Date: 20200417
  Receipt Date: 20201016
  Transmission Date: 20210113
  Serious: Yes (Life-Threatening, Hospitalization, Other)
  Sender: FDA-Public Use
  Company Number: NVSC2020US103095

PATIENT
  Age: 49 Year
  Sex: Male

DRUGS (2)
  1. ENTRESTO [Suspect]
     Active Substance: SACUBITRIL\VALSARTAN
     Indication: CARDIAC FAILURE
     Dosage: 50 MG, BID (24/26 MG)
     Route: 048
     Dates: start: 202003
  2. METOPROLOL. [Concomitant]
     Active Substance: METOPROLOL
     Indication: PRODUCT USED FOR UNKNOWN INDICATION
     Dosage: UNK
     Route: 065

REACTIONS (14)
  - Hypotension [Recovering/Resolving]
  - Ventricular tachycardia [Recovered/Resolved]
  - Ejection fraction abnormal [Recovered/Resolved]
  - Weight decreased [Unknown]
  - Loss of consciousness [Unknown]
  - Brain natriuretic peptide increased [Unknown]
  - Heart rate decreased [Unknown]
  - Feeling abnormal [Unknown]
  - Pain in extremity [Unknown]
  - Ejection fraction abnormal [Unknown]
  - Ventricular tachycardia [Recovered/Resolved]
  - Atrial fibrillation [Unknown]
  - Procedural pain [Unknown]
  - Fatigue [Not Recovered/Not Resolved]

NARRATIVE: CASE EVENT DATE: 202004
